FAERS Safety Report 6712120-7 (Version None)
Quarter: 2010Q2

REPORT INFORMATION
  Report Type: 
  Country: None (occurrence: None)
  Receive Date: 20100505
  Receipt Date: 20100423
  Transmission Date: 20101027
  Serious: Yes (Other)
  Sender: FDA-Public Use
  Company Number: US-PFIZER INC-2010052592

PATIENT
  Sex: Female
  Weight: 52.154 kg

DRUGS (4)
  1. XALATAN [Suspect]
     Indication: GLAUCOMA
     Dosage: 1 DROP IN EACH EYE
     Route: 047
  2. CYCLOSPORINE [Concomitant]
     Dosage: UNK
  3. BENICAR [Concomitant]
     Dosage: UNK
  4. TIMOLOL [Concomitant]
     Dosage: UNK

REACTIONS (2)
  - GLAUCOMA SURGERY [None]
  - RETINAL DETACHMENT [None]
